FAERS Safety Report 22335216 (Version 1)
Quarter: 2023Q2

REPORT INFORMATION
  Report Type: Spontaneous
  Country: US (occurrence: None)
  Receive Date: 20230518
  Receipt Date: 20230518
  Transmission Date: 20230721
  Serious: No
  Sender: FDA-Public Use
  Company Number: US-ROCHE-3284938

PATIENT
  Age: 71 Year
  Sex: Female
  Weight: 95.34 kg

DRUGS (10)
  1. ACTEMRA [Suspect]
     Active Substance: TOCILIZUMAB
     Indication: Giant cell arteritis
     Dosage: EVERY FRIDAY
     Route: 058
     Dates: start: 2021
  2. ACTEMRA [Suspect]
     Active Substance: TOCILIZUMAB
  3. ACTEMRA [Suspect]
     Active Substance: TOCILIZUMAB
     Route: 058
     Dates: start: 202210
  4. ACTEMRA [Suspect]
     Active Substance: TOCILIZUMAB
  5. LOSARTAN [Concomitant]
     Active Substance: LOSARTAN
     Indication: Hypertension
     Dosage: ONCE IN MORNING
     Route: 048
  6. CHLORTHALIDONE [Concomitant]
     Active Substance: CHLORTHALIDONE
     Indication: Hypertension
     Dosage: 1 IN MORNING
     Route: 048
  7. ATORVASTATIN [Concomitant]
     Active Substance: ATORVASTATIN
     Indication: Blood cholesterol increased
     Dosage: ONE AT LUNCHTIME
     Route: 048
  8. METHENAMINE MANDELATE [Concomitant]
     Active Substance: METHENAMINE MANDELATE
     Indication: Urinary tract infection
     Dosage: 1 AT LUNCHTIME
     Route: 048
     Dates: start: 2022
  9. AMITRIPTYLINE [Concomitant]
     Active Substance: AMITRIPTYLINE
     Indication: Headache
     Dosage: TAKES 10 MG X3 (30 MG) EVERY BEDTIME
     Route: 048
  10. PREDNISONE [Concomitant]
     Active Substance: PREDNISONE

REACTIONS (6)
  - Headache [Recovering/Resolving]
  - Device malfunction [Unknown]
  - Needle issue [Unknown]
  - Device issue [Unknown]
  - Device defective [Unknown]
  - Intentional device misuse [Unknown]

NARRATIVE: CASE EVENT DATE: 20230210
